FAERS Safety Report 20192981 (Version 1)
Quarter: 2021Q4

REPORT INFORMATION
  Report Type: Spontaneous
  Country: IT (occurrence: IT)
  Receive Date: 20211216
  Receipt Date: 20211216
  Transmission Date: 20220303
  Serious: Yes (Other)
  Sender: FDA-Public Use
  Company Number: IT-ABBVIE-21K-083-4199615-00

PATIENT
  Age: 10 Year
  Sex: Male
  Weight: 35 kg

DRUGS (1)
  1. VALPROATE SODIUM [Suspect]
     Active Substance: VALPROATE SODIUM
     Indication: Behaviour disorder
     Route: 048
     Dates: start: 20170628, end: 20170808

REACTIONS (2)
  - Hyperammonaemia [Unknown]
  - Intellectual disability [Unknown]

NARRATIVE: CASE EVENT DATE: 20170728
